FAERS Safety Report 5460848-1 (Version None)
Quarter: 2007Q3

REPORT INFORMATION
  Report Type: 
  Country: None (occurrence: None)
  Receive Date: 20070919
  Receipt Date: 20070911
  Transmission Date: 20080115
  Serious: No
  Sender: FDA-Public Use
  Company Number: US-BOEHRINGER INGELHEIM PHARMACEUTICALS, INC.-2007-BP-20876BP

PATIENT

DRUGS (1)
  1. FLOMAX [Suspect]
     Route: 048

REACTIONS (1)
  - DRUG HYPERSENSITIVITY [None]
